FAERS Safety Report 26189995 (Version 1)
Quarter: 2025Q4

REPORT INFORMATION
  Report Type: Spontaneous
  Country: EU (occurrence: EU)
  Receive Date: 20251223
  Receipt Date: 20251223
  Transmission Date: 20260118
  Serious: Yes (Death, Other)
  Sender: CHATTEM
  Company Number: EU-OPELLA-2025OHG035890

PATIENT
  Age: 39 Year
  Sex: Female

DRUGS (2)
  1. MAALOX ANTACID [Suspect]
     Active Substance: ALUMINUM HYDROXIDE\DIMETHICONE\MAGNESIUM HYDROXIDE
     Indication: Chest pain
     Route: 065
     Dates: start: 20251207
  2. MAALOX ANTACID [Suspect]
     Active Substance: ALUMINUM HYDROXIDE\DIMETHICONE\MAGNESIUM HYDROXIDE
     Indication: Abdominal pain upper

REACTIONS (3)
  - Cardiac arrest [Fatal]
  - Internal haemorrhage [Fatal]
  - Illness [Unknown]

NARRATIVE: CASE EVENT DATE: 20251207
